FAERS Safety Report 8501602-3 (Version None)
Quarter: 2012Q3

REPORT INFORMATION
  Report Type: 
  Country: None (occurrence: None)
  Receive Date: 20120710
  Receipt Date: 20120705
  Transmission Date: 20120928
  Serious: Yes (Other)
  Sender: FDA-Public Use
  Company Number: US-ROCHE-757929

PATIENT
  Sex: Female
  Weight: 61.2 kg

DRUGS (25)
  1. ACTEMRA [Suspect]
     Dosage: DOSE: 100-150 MG
     Route: 042
     Dates: start: 20110421, end: 20110421
  2. EVOXAC [Concomitant]
     Indication: DRY MOUTH
  3. ACTEMRA [Suspect]
     Route: 042
     Dates: start: 20110321, end: 20110321
  4. NITROGLYCERIN [Concomitant]
     Route: 060
  5. SYNTHROID [Concomitant]
     Indication: HYPOTHYROIDISM
  6. CYMBALTA [Concomitant]
     Indication: FIBROMYALGIA
     Dosage: INDICATION: DEPRESSION
  7. ACTEMRA [Suspect]
     Indication: RHEUMATOID ARTHRITIS
     Dosage: FORM: INFUSION
     Route: 042
     Dates: start: 20101221, end: 20101221
  8. ACTEMRA [Suspect]
     Route: 042
     Dates: start: 20110221, end: 20110221
  9. GABAPENTIN [Concomitant]
  10. NIFEDIPINE [Concomitant]
     Indication: RAYNAUD'S PHENOMENON
  11. ACTEMRA [Suspect]
     Route: 042
     Dates: start: 20110127, end: 20110127
  12. ALBUTEROL [Concomitant]
     Dosage: ROUTE:PUFFER
     Route: 050
  13. AMBIEN [Concomitant]
     Indication: SOMNOLENCE
     Dosage: TAKEN AT BEDTIME
  14. CELEBREX [Concomitant]
  15. HYDROCODONE [Concomitant]
     Indication: PAIN
     Dosage: DOSE REPORTED:500
  16. PROTONIX [Concomitant]
  17. DEPO-MEDROL [Concomitant]
     Indication: PREMEDICATION
  18. FLEXERIL [Concomitant]
  19. METOPROLOL SUCCINATE [Concomitant]
  20. SIMVASTATIN [Concomitant]
  21. AMBIEN [Concomitant]
     Dosage: TAKEN AT BEDTIME
  22. METOPROLOL SUCCINATE [Concomitant]
     Indication: BLOOD PRESSURE
  23. NIACIN [Concomitant]
  24. NEURONTIN [Concomitant]
     Indication: NECK PAIN
  25. PRILOSEC [Concomitant]

REACTIONS (18)
  - PNEUMONIA [None]
  - ABDOMINAL PAIN UPPER [None]
  - TREMOR [None]
  - INTRACRANIAL PRESSURE INCREASED [None]
  - DYSKINESIA [None]
  - C-REACTIVE PROTEIN INCREASED [None]
  - GAIT DISTURBANCE [None]
  - RHEUMATOID FACTOR INCREASED [None]
  - FALL [None]
  - VASCULITIS CEREBRAL [None]
  - ANTINUCLEAR ANTIBODY INCREASED [None]
  - NEUROPATHY PERIPHERAL [None]
  - HEADACHE [None]
  - ANAEMIA MACROCYTIC [None]
  - DIZZINESS [None]
  - BRONCHITIS [None]
  - HYPOAESTHESIA [None]
  - NEURALGIA [None]
